FAERS Safety Report 8023990-7 (Version None)
Quarter: 2011Q4

REPORT INFORMATION
  Report Type: 
  Country: None (occurrence: None)
  Receive Date: 20111230
  Receipt Date: 20111222
  Transmission Date: 20120403
  Serious: No
  Sender: FDA-Public Use
  Company Number: JPI-P-018517

PATIENT
  Sex: Male
  Weight: 98.8842 kg

DRUGS (4)
  1. MODAFINIL [Concomitant]
  2. SERTRALINE HYDROCHLORIDE [Concomitant]
  3. XYREM [Suspect]
     Indication: CATAPLEXY
     Dosage: 5 GM (2.5 GM, 2 IN 1 D), ORAL
     Route: 048
     Dates: start: 20111121
  4. OMEPRAZOLE [Concomitant]

REACTIONS (9)
  - CONVULSION [None]
  - TREMOR [None]
  - DRUG INEFFECTIVE [None]
  - HYPERSOMNIA [None]
  - DYSGRAPHIA [None]
  - MUSCULAR WEAKNESS [None]
  - SOMNOLENCE [None]
  - ANXIETY [None]
  - CATAPLEXY [None]
